FAERS Safety Report 21078746 (Version 1)
Quarter: 2022Q3

REPORT INFORMATION
  Report Type: Spontaneous
  Country: US (occurrence: US)
  Receive Date: 20220713
  Receipt Date: 20220713
  Transmission Date: 20221026
  Serious: No
  Sender: FDA-Public Use
  Company Number: US-SA-SAC20220708000607

PATIENT
  Age: 46 Year
  Sex: Female

DRUGS (2)
  1. FABRAZYME [Suspect]
     Active Substance: AGALSIDASE BETA
     Indication: Fabry^s disease
     Dosage: 70 MG, QOW, STRENGTH: 35 MG
     Route: 042
     Dates: start: 202111
  2. FABRAZYME [Suspect]
     Active Substance: AGALSIDASE BETA
     Dosage: 25 MG, QOW, STRENGTH: 5 MG
     Route: 042

REACTIONS (2)
  - Weight decreased [Unknown]
  - Pruritus [Unknown]
